FAERS Safety Report 15586371 (Version 1)
Quarter: 2018Q4

REPORT INFORMATION
  Report Type: Report from Study
  Country: BE (occurrence: BE)
  Receive Date: 20181105
  Receipt Date: 20181105
  Transmission Date: 20190205
  Serious: Yes (Other)
  Sender: FDA-Public Use
  Company Number: BE-MYLANLABS-2018M1081363

PATIENT
  Sex: Female

DRUGS (5)
  1. METHOTREXATE (METHOTREXATE SODIUM) [Suspect]
     Active Substance: METHOTREXATE SODIUM
     Indication: RHEUMATOID ARTHRITIS
     Route: 065
     Dates: start: 19931001, end: 20160301
  2. PLAQUENIL                          /00072602/ [Suspect]
     Active Substance: HYDROXYCHLOROQUINE DIPHOSPHATE
     Indication: RHEUMATOID ARTHRITIS
     Route: 065
     Dates: start: 19931001, end: 20160301
  3. ALLOCHRYSINE /00499201/ [Suspect]
     Active Substance: AUROTIOPROL
     Indication: RHEUMATOID ARTHRITIS
     Route: 065
  4. RIDAURA [Suspect]
     Active Substance: AURANOFIN
     Indication: RHEUMATOID ARTHRITIS
     Route: 065
  5. PENICILLAMINE [Suspect]
     Active Substance: PENICILLAMINE
     Indication: RHEUMATOID ARTHRITIS
     Route: 065

REACTIONS (1)
  - Lymphoid tissue hyperplasia [Recovered/Resolved]
